FAERS Safety Report 12939308 (Version 1)
Quarter: 2016Q4

REPORT INFORMATION
  Report Type: Spontaneous
  Country: US (occurrence: US)
  Receive Date: 20161115
  Receipt Date: 20161115
  Transmission Date: 20170207
  Serious: No
  Sender: FDA-Public Use
  Company Number: US-PFIZER INC-2016530178

PATIENT
  Age: 59 Year
  Sex: Male
  Weight: 67 kg

DRUGS (2)
  1. FLECTOR [Suspect]
     Active Substance: DICLOFENAC EPOLAMINE
     Indication: LIMB INJURY
     Dosage: UNK
     Dates: start: 20161109, end: 20161110
  2. AMLODIPINE [Concomitant]
     Active Substance: AMLODIPINE BESYLATE
     Indication: BLOOD PRESSURE MEASUREMENT
     Dosage: 1X/DAY
     Dates: start: 20160730

REACTIONS (6)
  - Swelling face [Not Recovered/Not Resolved]
  - Intentional product misuse [Unknown]
  - Skin reaction [Recovering/Resolving]
  - Pruritus [Recovering/Resolving]
  - Rash [Unknown]
  - Eye swelling [Not Recovered/Not Resolved]

NARRATIVE: CASE EVENT DATE: 20161109
